FAERS Safety Report 6327896-0 (Version None)
Quarter: 2009Q3

REPORT INFORMATION
  Report Type: 
  Country: None (occurrence: None)
  Receive Date: 20090825
  Receipt Date: 20080728
  Transmission Date: 20100115
  Serious: No
  Sender: FDA-Public Use
  Company Number: US-ABBOTT-08P-163-0466176-00

PATIENT
  Sex: Female
  Weight: 54.48 kg

DRUGS (4)
  1. SYNTHROID [Suspect]
     Indication: HYPOTHYROIDISM
     Route: 048
     Dates: start: 20080311, end: 20080619
  2. SYNTHROID [Suspect]
     Route: 048
     Dates: start: 20080620
  3. KLIOGEST [Concomitant]
     Indication: OSTEOPOROSIS
     Dosage: 1/0.5MG TABLET
     Route: 048
  4. KLIOGEST [Concomitant]
     Route: 048

REACTIONS (1)
  - TOOTH DISCOLOURATION [None]
